FAERS Safety Report 4791359-4 (Version None)
Quarter: 2005Q4

REPORT INFORMATION
  Report Type: 
  Country: None (occurrence: None)
  Receive Date: 20051007
  Receipt Date: 20050924
  Transmission Date: 20060501
  Serious: Yes (Other)
  Sender: FDA-Public Use
  Company Number: BR-ROCHE-419055

PATIENT
  Sex: Female

DRUGS (2)
  1. PEGASYS [Suspect]
     Indication: HEPATITIS C
     Route: 058
     Dates: start: 20030815, end: 20040815
  2. RIBAVIRIN [Concomitant]
     Indication: HEPATITIS C
     Dates: start: 20030815, end: 20040815

REACTIONS (5)
  - CATARACT [None]
  - DYSPHAGIA [None]
  - DYSPHORIA [None]
  - RENAL CYST [None]
  - VISUAL DISTURBANCE [None]
